FAERS Safety Report 16942597 (Version 1)
Quarter: 2019Q4

REPORT INFORMATION
  Report Type: Spontaneous
  Country: US (occurrence: US)
  Receive Date: 20191021
  Receipt Date: 20191021
  Transmission Date: 20200122
  Serious: Yes (Hospitalization, Other)
  Sender: FDA-Public Use
  Company Number: US-PFIZER INC-2019452956

PATIENT
  Age: 60 Year

DRUGS (9)
  1. ASPIRIN. [Concomitant]
     Active Substance: ASPIRIN
     Indication: BLOOD PRESSURE INCREASED
     Dosage: 81 MG, UNK
     Dates: start: 2007
  2. ASPIRIN. [Concomitant]
     Active Substance: ASPIRIN
     Indication: BLOOD CHOLESTEROL ABNORMAL
  3. VIAGRA [Suspect]
     Active Substance: SILDENAFIL CITRATE
     Dosage: HALF TABLET, AS DIRECTED, MIGHT INCREASE TO ONE TABLET (APPROXIMATELY 1-2 TIMES PER WEEK ON AVERAGE)
     Route: 048
     Dates: start: 200605, end: 201212
  4. LEVITRA [Concomitant]
     Active Substance: VARDENAFIL HYDROCHLORIDE
     Indication: ERECTILE DYSFUNCTION
     Dosage: 1 DF, AS NEEDED (APPROXIMATELY 1-2 TIMES PER WEEK ON AVERAGE)
     Route: 048
     Dates: start: 20060508, end: 200605
  5. BENADRYL [Concomitant]
     Active Substance: DIPHENHYDRAMINE HYDROCHLORIDE
     Indication: HYPERSENSITIVITY
     Dosage: UNK UNK, AS NEEDED
  6. VIAGRA [Suspect]
     Active Substance: SILDENAFIL CITRATE
     Dosage: HALF TABLET, AS DIRECTED, MIGHT INCREASE TO ONE TABLET (APPROXIMATELY 1-2 TIMES PER WEEK ON AVERAGE)
     Route: 048
     Dates: start: 20121211, end: 20130131
  7. TYLENOL PM [Concomitant]
     Active Substance: ACETAMINOPHEN\DIPHENHYDRAMINE
     Indication: INSOMNIA
     Dosage: UNK (OCCASIONALLY)
  8. VIAGRA [Suspect]
     Active Substance: SILDENAFIL CITRATE
     Indication: ERECTILE DYSFUNCTION
     Dosage: 50 MG, UNK (HALF TABLET, AS DIRECTED)
     Route: 048
     Dates: start: 20060508, end: 20060508
  9. FISH OIL [Concomitant]
     Active Substance: FISH OIL
     Indication: CARDIOVASCULAR EVENT PROPHYLAXIS
     Dosage: UNK
     Dates: start: 2014, end: 20150818

REACTIONS (3)
  - Malignant melanoma in situ [Unknown]
  - Anxiety [Unknown]
  - Emotional distress [Unknown]

NARRATIVE: CASE EVENT DATE: 20120604
